FAERS Safety Report 4394007-0 (Version None)
Quarter: 2004Q3

REPORT INFORMATION
  Report Type: 
  Country: None (occurrence: None)
  Receive Date: 20040709
  Receipt Date: 20040702
  Transmission Date: 20050211
  Serious: Yes (Hospitalization, Other)
  Sender: FDA-Public Use
  Company Number: LB-MERCK-0407USA00183

PATIENT
  Age: 61 Year
  Sex: Male

DRUGS (5)
  1. COMBIVENT [Concomitant]
     Route: 065
  2. AMLODIPINE [Concomitant]
     Route: 065
  3. LASIX [Concomitant]
     Route: 065
  4. MIBEFRADIL [Concomitant]
     Route: 065
  5. ZOCOR [Suspect]
     Route: 048

REACTIONS (1)
  - CHEST PAIN [None]
